FAERS Safety Report 8904613 (Version 9)
Quarter: 2014Q1

REPORT INFORMATION
  Report Type: Spontaneous
  Country: US (occurrence: US)
  Receive Date: 20121112
  Receipt Date: 20140121
  Transmission Date: 20141002
  Serious: Yes (Hospitalization, Other)
  Sender: FDA-Public Use
  Company Number: US-009507513-1203USA01070

PATIENT
  Sex: Female
  Weight: 70.3 kg

DRUGS (8)
  1. FOSAMAX [Suspect]
     Indication: OSTEOPOROSIS
     Dosage: 10 MG, QD
     Route: 048
     Dates: start: 19961005, end: 200105
  2. FOSAMAX [Suspect]
     Dosage: 70 MG, QW
     Route: 048
     Dates: start: 20010528, end: 200208
  3. ACTONEL [Suspect]
     Indication: OSTEOPOROSIS
     Dosage: 35 MG, UNK
     Dates: start: 200302, end: 201003
  4. HORMONES (UNSPECIFIED) [Concomitant]
     Dosage: UNK
     Dates: start: 19960412, end: 20091218
  5. CALTRATE + D [Concomitant]
     Indication: OSTEOPOROSIS
  6. VIACTIV SOFT CALCIUM CHEWS [Concomitant]
     Indication: OSTEOPOROSIS
  7. HORMONES (UNSPECIFIED) [Concomitant]
     Indication: OSTEOPOROSIS
     Dosage: UNK
     Dates: end: 20020228
  8. EVISTA [Concomitant]
     Indication: OSTEOPOROSIS
     Dosage: UNK
     Dates: start: 20020228

REACTIONS (39)
  - Femur fracture [Unknown]
  - Open reduction of fracture [Unknown]
  - Rotator cuff repair [Unknown]
  - Cardiomegaly [Unknown]
  - Haemoglobin decreased [Unknown]
  - Extranodal marginal zone B-cell lymphoma (MALT type) [Unknown]
  - Lymphadenectomy [Unknown]
  - Joint dislocation [Unknown]
  - Hip surgery [Unknown]
  - Hip arthroplasty [Unknown]
  - Soft tissue disorder [Unknown]
  - Vitamin D deficiency [Unknown]
  - Hypothyroidism [Unknown]
  - Cataract operation [Unknown]
  - Endodontic procedure [Unknown]
  - Endodontic procedure [Unknown]
  - Low turnover osteopathy [Unknown]
  - Bunion operation [Unknown]
  - Hypertension [Unknown]
  - Fall [Unknown]
  - Osteoarthritis [Unknown]
  - Joint effusion [Unknown]
  - Contusion [Unknown]
  - Bursitis [Unknown]
  - Patellofemoral pain syndrome [Unknown]
  - Osteopenia [Unknown]
  - Ilium fracture [Unknown]
  - Bone scan abnormal [Unknown]
  - Ilium fracture [Unknown]
  - Facet joint syndrome [Unknown]
  - Osteitis [Unknown]
  - Uterine leiomyoma [Unknown]
  - Endodontic procedure [Unknown]
  - Plantar fasciitis [Unknown]
  - Exostosis [Unknown]
  - Dyskinesia [Unknown]
  - Oestrogen deficiency [Unknown]
  - Hormone level abnormal [Unknown]
  - Osteopenia [Unknown]
